FAERS Safety Report 6603497-1 (Version None)
Quarter: 2010Q1

REPORT INFORMATION
  Report Type: 
  Country: None (occurrence: None)
  Receive Date: 20100226
  Receipt Date: 20090721
  Transmission Date: 20100710
  Serious: Yes (Disabling)
  Sender: FDA-Public Use
  Company Number: A0799464A

PATIENT
  Sex: Female

DRUGS (1)
  1. VALTREX [Suspect]

REACTIONS (1)
  - ABDOMINAL PAIN [None]
